FAERS Safety Report 24424114 (Version 1)
Quarter: 2024Q4

REPORT INFORMATION
  Report Type: Spontaneous
  Country: US (occurrence: None)
  Receive Date: 20241010
  Receipt Date: 20241010
  Transmission Date: 20250114
  Serious: No
  Sender: Public
  Company Number: None

PATIENT
  Sex: 0

DRUGS (1)
  1. FIBERCON [Suspect]
     Active Substance: CALCIUM POLYCARBOPHIL

REACTIONS (2)
  - Condition aggravated [None]
  - Product substitution issue [None]
